FAERS Safety Report 20910847 (Version 2)
Quarter: 2022Q2

REPORT INFORMATION
  Report Type: Report from Study
  Country: CA (occurrence: CA)
  Receive Date: 20220603
  Receipt Date: 20220607
  Transmission Date: 20220721
  Serious: Yes (Death)
  Sender: FDA-Public Use
  Company Number: CA-ABBVIE-22K-028-4383770-00

PATIENT
  Sex: Male

DRUGS (1)
  1. VENCLEXTA [Suspect]
     Active Substance: VENETOCLAX
     Indication: Chronic lymphocytic leukaemia
     Route: 048
     Dates: start: 20220413

REACTIONS (2)
  - Death [Fatal]
  - General physical health deterioration [Unknown]

NARRATIVE: CASE EVENT DATE: 20220101
